FAERS Safety Report 12327529 (Version 1)
Quarter: 2016Q2

REPORT INFORMATION
  Report Type: Spontaneous
  Country: US (occurrence: US)
  Receive Date: 20160503
  Receipt Date: 20160503
  Transmission Date: 20160815
  Serious: No
  Sender: FDA-Public Use
  Company Number: US-GLAXOSMITHKLINE-US2016GSK055504

PATIENT
  Sex: Female

DRUGS (1)
  1. CARVEDILOL PHOSPHATE. [Suspect]
     Active Substance: CARVEDILOL PHOSPHATE
     Indication: HEART RATE IRREGULAR
     Dosage: 12.5 MG TABLETS

REACTIONS (3)
  - Ill-defined disorder [Unknown]
  - Dizziness [Unknown]
  - Product substitution issue [Unknown]
